FAERS Safety Report 14530508 (Version 2)
Quarter: 2018Q1

REPORT INFORMATION
  Report Type: Report from Study
  Country: DE (occurrence: DE)
  Receive Date: 20180214
  Receipt Date: 20180316
  Transmission Date: 20180509
  Serious: Yes (Death, Hospitalization, Congenital Anomaly, Other)
  Sender: FDA-Public Use
  Company Number: DE-TEVA-2018-DE-856008

PATIENT
  Age: 52 Year
  Sex: Female
  Weight: 66 kg

DRUGS (28)
  1. IRINOTECAN [Suspect]
     Active Substance: IRINOTECAN
     Indication: COLORECTAL CANCER
     Route: 065
     Dates: start: 20160908, end: 20160908
  2. IRINOTECAN [Suspect]
     Active Substance: IRINOTECAN
     Route: 065
     Dates: start: 20150608, end: 20150608
  3. 5-FLUOROURACIL [Suspect]
     Active Substance: FLUOROURACIL
     Indication: COLORECTAL CANCER
     Route: 040
     Dates: start: 20151126, end: 20151126
  4. IRINOTECAN [Suspect]
     Active Substance: IRINOTECAN
     Route: 065
     Dates: start: 20150813, end: 20151008
  5. AVASTIN [Suspect]
     Active Substance: BEVACIZUMAB
     Route: 065
     Dates: start: 20160630
  6. FOLINIC ACID [Concomitant]
     Active Substance: LEUCOVORIN
     Indication: COLORECTAL CANCER
     Dates: start: 20151126, end: 20151126
  7. FOLINIC ACID [Concomitant]
     Active Substance: LEUCOVORIN
     Dosage: DOSAGES BETWEEN 255 MG AND 645 MG
     Dates: end: 20160630
  8. OXALIPLATIN. [Concomitant]
     Active Substance: OXALIPLATIN
     Dosage: 110-140
     Dates: start: 20150428, end: 20150609
  9. CLEXANE [Concomitant]
     Active Substance: ENOXAPARIN SODIUM
     Indication: THROMBOSIS PROPHYLAXIS
     Route: 058
     Dates: start: 20150427
  10. IRINOTECAN [Suspect]
     Active Substance: IRINOTECAN
     Route: 065
     Dates: start: 20150626, end: 20150626
  11. IRINOTECAN [Suspect]
     Active Substance: IRINOTECAN
     Route: 065
     Dates: end: 20150630
  12. FOLINIC ACID [Concomitant]
     Active Substance: LEUCOVORIN
     Dates: start: 20150608, end: 20150608
  13. OXALIPLATIN. [Concomitant]
     Active Substance: OXALIPLATIN
     Indication: COLORECTAL CANCER
     Dates: start: 20150627, end: 20150731
  14. GRANOCYTE [Concomitant]
     Active Substance: LENOGRASTIM
     Indication: NEUTROPENIA
     Route: 058
     Dates: start: 20150615, end: 20150810
  15. 5-FLUOROURACIL [Suspect]
     Active Substance: FLUOROURACIL
     Route: 040
     Dates: start: 20160428, end: 20160428
  16. AVASTIN [Suspect]
     Active Substance: BEVACIZUMAB
     Route: 065
     Dates: start: 20160107
  17. FOLINIC ACID [Concomitant]
     Active Substance: LEUCOVORIN
     Dates: start: 20150813, end: 20151008
  18. 5-FLUOROURACIL [Suspect]
     Active Substance: FLUOROURACIL
     Route: 065
     Dates: start: 20150428, end: 20150430
  19. IRINOTECAN [Suspect]
     Active Substance: IRINOTECAN
     Route: 065
     Dates: start: 20150713, end: 20150730
  20. IRINOTECAN [Suspect]
     Active Substance: IRINOTECAN
     Route: 065
     Dates: start: 20150428, end: 20150526
  21. AVASTIN [Suspect]
     Active Substance: BEVACIZUMAB
     Route: 065
     Dates: start: 20160908
  22. OXALIPLATIN. [Concomitant]
     Active Substance: OXALIPLATIN
     Dates: start: 20150814, end: 20150925
  23. 5-FLUOROURACIL [Suspect]
     Active Substance: FLUOROURACIL
     Route: 065
     Dates: start: 20160908, end: 20160909
  24. AVASTIN [Suspect]
     Active Substance: BEVACIZUMAB
     Indication: COLORECTAL CANCER
     Route: 065
     Dates: start: 20150428
  25. FOLINIC ACID [Concomitant]
     Active Substance: LEUCOVORIN
     Dates: start: 20160908, end: 20160908
  26. FOLINIC ACID [Concomitant]
     Active Substance: LEUCOVORIN
     Dates: start: 20150428, end: 20150526
  27. FOLINIC ACID [Concomitant]
     Active Substance: LEUCOVORIN
     Dates: start: 20151210, end: 20160121
  28. FOLINIC ACID [Concomitant]
     Active Substance: LEUCOVORIN
     Dates: start: 20150626, end: 20150730

REACTIONS (8)
  - Metastases to central nervous system [Fatal]
  - Mucosal inflammation [Recovered/Resolved]
  - Cystitis radiation [Recovering/Resolving]
  - Cystitis haemorrhagic [Recovering/Resolving]
  - Bladder tamponade [Unknown]
  - Proteinuria [Recovered/Resolved]
  - Vomiting [Recovered/Resolved]
  - Metastases to meninges [Unknown]

NARRATIVE: CASE EVENT DATE: 20160107
